FAERS Safety Report 16733229 (Version 1)
Quarter: 2019Q3

REPORT INFORMATION
  Report Type: Spontaneous
  Country: US (occurrence: US)
  Receive Date: 20190823
  Receipt Date: 20190823
  Transmission Date: 20191005
  Serious: No
  Sender: FDA-Public Use
  Company Number: US-BIOGEN-2019BI00777169

PATIENT

DRUGS (14)
  1. INDOMETHACIN. [Concomitant]
     Active Substance: INDOMETHACIN
     Route: 048
  2. NIFEDIPINE. [Concomitant]
     Active Substance: NIFEDIPINE
     Route: 048
  3. ESTRADIOL. [Concomitant]
     Active Substance: ESTRADIOL
     Route: 065
  4. DETROL [Concomitant]
     Active Substance: TOLTERODINE TARTRATE
     Route: 048
  5. AMITRIPTYLINE HCL [Concomitant]
     Active Substance: AMITRIPTYLINE
     Route: 048
  6. ASPIRIN. [Concomitant]
     Active Substance: ASPIRIN
     Route: 048
  7. PLEGRIDY [Suspect]
     Active Substance: PEGINTERFERON BETA-1A
     Indication: MULTIPLE SCLEROSIS
     Route: 058
     Dates: start: 20150316
  8. ADVAIR DISKUS [Concomitant]
     Active Substance: FLUTICASONE PROPIONATE\SALMETEROL XINAFOATE
     Route: 065
  9. MAXALT [Concomitant]
     Active Substance: RIZATRIPTAN BENZOATE
     Dosage: 1 AT ONSET OF SEVERE HA
     Route: 048
  10. ALENDRONATE SODIUM. [Concomitant]
     Active Substance: ALENDRONATE SODIUM
     Route: 048
  11. ENDOMETRIN [Concomitant]
     Active Substance: PROGESTERONE
     Route: 065
  12. ALLOPURINOL. [Concomitant]
     Active Substance: ALLOPURINOL
     Route: 048
  13. NEXIUM [Concomitant]
     Active Substance: ESOMEPRAZOLE MAGNESIUM
     Route: 048
  14. NIACIN. [Concomitant]
     Active Substance: NIACIN
     Route: 048

REACTIONS (21)
  - Mean cell haemoglobin concentration decreased [Unknown]
  - Red cell distribution width increased [Unknown]
  - Granulocyte count increased [Unknown]
  - Haemoglobin decreased [Unknown]
  - Haematocrit decreased [Unknown]
  - Platelet count increased [Unknown]
  - Neutrophil count increased [Unknown]
  - Red blood cell count decreased [Unknown]
  - Glomerular filtration rate decreased [Unknown]
  - Eosinophil count increased [Unknown]
  - Blood chloride decreased [Unknown]
  - Blood creatinine increased [Unknown]
  - Neutrophil percentage increased [Unknown]
  - Blood glucose increased [Unknown]
  - White blood cell count increased [Unknown]
  - Blood alkaline phosphatase increased [Unknown]
  - Multiple sclerosis relapse [Unknown]
  - Blood sodium decreased [Unknown]
  - Blood urea increased [Unknown]
  - Lymphocyte percentage decreased [Unknown]
  - Alanine aminotransferase increased [Unknown]
